FAERS Safety Report 11022219 (Version 1)
Quarter: 2015Q2

REPORT INFORMATION
  Report Type: Spontaneous
  Country: CA (occurrence: CA)
  Receive Date: 20150413
  Receipt Date: 20150413
  Transmission Date: 20150821
  Serious: Yes (Hospitalization)
  Sender: FDA-Public Use
  Company Number: CA-APOTEX-2014AP005429

PATIENT
  Age: 80 Year
  Sex: Male

DRUGS (3)
  1. APO-MYCO[PHENOLATE [Suspect]
     Active Substance: MYCOPHENOLIC ACID
     Indication: PEMPHIGUS
     Dosage: 1.5 G, BID
     Route: 065
  2. APO-MYCO[PHENOLATE [Suspect]
     Active Substance: MYCOPHENOLIC ACID
     Dosage: 500 MG, UNK
  3. APO-PREDNISONE [Suspect]
     Active Substance: PREDNISONE
     Indication: PEMPHIGUS
     Dosage: 5MG DAILY
     Route: 065

REACTIONS (1)
  - Cytomegalovirus chorioretinitis [Recovering/Resolving]
